FAERS Safety Report 4825120-9 (Version None)
Quarter: 2005Q4

REPORT INFORMATION
  Report Type: 
  Country: None (occurrence: None)
  Receive Date: 20051109
  Receipt Date: 20051109
  Transmission Date: 20060501
  Serious: Yes (Hospitalization, Other)
  Sender: FDA-Public Use
  Company Number: None

PATIENT
  Age: 55 Year
  Sex: Male
  Weight: 68.4 kg

DRUGS (13)
  1. PSEUDOEPHEDRINE HCL [Suspect]
     Indication: HYPOTENSION
     Dosage: DURATION: APPROX 2 WEEKS
     Dates: start: 20050601, end: 20050614
  2. ACETAMINOPHEN [Concomitant]
  3. ALLOPURINOL [Concomitant]
  4. ASPIRIN [Concomitant]
  5. BUPROPION HCL [Concomitant]
  6. CALCITRIOL [Concomitant]
  7. CALCIUM ACETATE [Concomitant]
  8. MIDODRINE HCL [Concomitant]
  9. NEPHROCAPS [Concomitant]
  10. OMEPRAZOLE [Concomitant]
  11. SEVELAMER [Concomitant]
  12. DIPHENHYDRAMINE HCL [Concomitant]
  13. PHENERGAN [Concomitant]

REACTIONS (3)
  - HALLUCINATION, VISUAL [None]
  - PERSONALITY CHANGE [None]
  - TARDIVE DYSKINESIA [None]
